FAERS Safety Report 11247416 (Version 1)
Quarter: 2015Q3

REPORT INFORMATION
  Report Type: Spontaneous
  Country: US (occurrence: None)
  Receive Date: 20150707
  Receipt Date: 20150707
  Transmission Date: 20151125
  Serious: Yes (Hospitalization)
  Sender: FDA-Public Use
  Company Number: None

PATIENT
  Age: 58 Year
  Sex: Male
  Weight: 10.8 kg

DRUGS (8)
  1. MORPHINE [Concomitant]
     Active Substance: MORPHINE
  2. MAGNESIUM SUPPLEMENT [Concomitant]
  3. PALBOCICLIB 125 MG [Suspect]
     Active Substance: PALBOCICLIB
     Indication: NEOPLASM RECURRENCE
     Dosage: D 1-21 Q28
     Route: 048
     Dates: start: 20150325, end: 20150623
  4. PROCHLORPERAZINE. [Concomitant]
     Active Substance: PROCHLORPERAZINE
  5. PALBOCICLIB 125 MG [Suspect]
     Active Substance: PALBOCICLIB
     Indication: SQUAMOUS CELL CARCINOMA OF HEAD AND NECK
     Dosage: D 1-21 Q28
     Route: 048
     Dates: start: 20150325, end: 20150623
  6. CETUXIMAB 250 MG/M2 IV [Suspect]
     Active Substance: CETUXIMAB
     Indication: SQUAMOUS CELL CARCINOMA OF HEAD AND NECK
     Route: 042
     Dates: start: 20150325, end: 20150701
  7. PREDNISONE. [Concomitant]
     Active Substance: PREDNISONE
  8. CETUXIMAB 250 MG/M2 IV [Suspect]
     Active Substance: CETUXIMAB
     Route: 042
     Dates: start: 20150325, end: 20150701

REACTIONS (5)
  - Vomiting [None]
  - Hypophagia [None]
  - Alcoholic hangover [None]
  - Abdominal pain [None]
  - Nausea [None]

NARRATIVE: CASE EVENT DATE: 20150705
